FAERS Safety Report 9280406 (Version 3)
Quarter: 2013Q2

REPORT INFORMATION
  Report Type: Spontaneous
  Country: US (occurrence: US)
  Receive Date: 20130509
  Receipt Date: 20130606
  Transmission Date: 20140414
  Serious: Yes (Other)
  Sender: FDA-Public Use
  Company Number: US-JNJFOC-20130414969

PATIENT
  Sex: Female

DRUGS (8)
  1. ORTHO MICRONOR [Suspect]
     Indication: PROPHYLAXIS
     Route: 048
     Dates: start: 20120123
  2. ORTHO MICRONOR [Suspect]
     Indication: CONTRACEPTION
     Route: 048
     Dates: start: 20120123
  3. VELIVET [Suspect]
     Indication: PROPHYLAXIS
     Route: 048
  4. VELIVET [Suspect]
     Indication: CONTRACEPTION
     Route: 048
  5. YAZ [Suspect]
     Indication: PROPHYLAXIS
     Route: 048
  6. YAZ [Suspect]
     Indication: CONTRACEPTION
     Route: 048
  7. LOESTRIN [Suspect]
     Indication: PROPHYLAXIS
     Route: 048
  8. LOESTRIN [Suspect]
     Indication: CONTRACEPTION
     Route: 048

REACTIONS (4)
  - Hypersensitivity [Recovered/Resolved]
  - Abdominal pain [Recovered/Resolved]
  - Alopecia [Unknown]
  - Off label use [Recovered/Resolved]
